FAERS Safety Report 9407727 (Version 4)
Quarter: 2013Q4

REPORT INFORMATION
  Report Type: Report from Study
  Country: US (occurrence: US)
  Receive Date: 20130718
  Receipt Date: 20131231
  Transmission Date: 20140711
  Serious: Yes (Death)
  Sender: FDA-Public Use
  Company Number: US-B.I. PHARMACEUTICALS,INC./RIDGEFIELD-2013-RU-00708BP

PATIENT
  Age: 78 Year
  Sex: Male
  Weight: 113 kg

DRUGS (10)
  1. DABIGATRAN [Suspect]
     Indication: CEREBROVASCULAR ACCIDENT PROPHYLAXIS
     Dates: start: 20130603, end: 20130705
  2. DABIGATRAN [Suspect]
     Indication: ATRIAL FIBRILLATION
  3. PROPOFOL [Concomitant]
     Indication: SEDATION
     Dates: start: 20130709, end: 20130710
  4. SODIUM CHLORIDE 0.9% IV [Concomitant]
     Indication: PROPHYLAXIS AGAINST DEHYDRATION
     Dates: start: 20130710, end: 20130711
  5. HEPARIN [Concomitant]
     Indication: CEREBROVASCULAR ACCIDENT
     Dates: start: 20130710, end: 20130711
  6. PHENYLEPHRINE [Concomitant]
     Indication: HYPOTENSION
     Dates: start: 20130710, end: 20130711
  7. ASPIRIN 300MG [Concomitant]
     Indication: PROPHYLAXIS
     Dates: start: 20130710, end: 20130711
  8. ACETAMINOPHEN [Concomitant]
     Indication: PROPHYLAXIS
     Dates: start: 20130710, end: 20130711
  9. CHLORHEXIDINE (MOUTH/THROAT) [Concomitant]
     Indication: INFECTION PROPHYLAXIS
     Dates: start: 20130710, end: 20130710
  10. VECURONIUM [Concomitant]
     Indication: UNEVALUABLE EVENT
     Dates: start: 20130709, end: 20130709

REACTIONS (1)
  - Cerebral thrombosis [Fatal]
